FAERS Safety Report 23727001 (Version 1)
Quarter: 2024Q2

REPORT INFORMATION
  Report Type: Spontaneous
  Country: US (occurrence: US)
  Receive Date: 20240410
  Receipt Date: 20240410
  Transmission Date: 20240716
  Serious: No
  Sender: FDA-Public Use
  Company Number: US-SANOFI-01999786

PATIENT
  Age: 97 Year

DRUGS (2)
  1. DUPIXENT [Suspect]
     Active Substance: DUPILUMAB
     Dosage: UNK UNK, 1X; LOADING DOSE
     Dates: start: 20240329, end: 20240329
  2. DUPIXENT [Suspect]
     Active Substance: DUPILUMAB
     Dosage: MAINTENANCE DOSE
     Dates: start: 20240330

REACTIONS (1)
  - Inappropriate schedule of product administration [Unknown]

NARRATIVE: CASE EVENT DATE: 20240330
